FAERS Safety Report 13010699 (Version 2)
Quarter: 2017Q1

REPORT INFORMATION
  Report Type: Spontaneous
  Country: ES (occurrence: ES)
  Receive Date: 20161208
  Receipt Date: 20170103
  Transmission Date: 20170428
  Serious: Yes (Hospitalization, Disabling)
  Sender: FDA-Public Use
  Company Number: ES-IMPAX LABORATORIES, INC-2016-IPXL-02253

PATIENT
  Age: 52 Year
  Sex: Male
  Weight: 108 kg

DRUGS (13)
  1. ESCITALOPRAM [Concomitant]
     Active Substance: ESCITALOPRAM OXALATE
     Indication: PRODUCT USED FOR UNKNOWN INDICATION
     Dosage: 30 MG, DAILY
     Route: 048
  2. BEMIPARIN SODIUM [Concomitant]
     Active Substance: BEMIPARIN SODIUM
     Indication: PRODUCT USED FOR UNKNOWN INDICATION
     Dosage: 10000 IU, DAILY
     Route: 058
  3. PREGABALIN. [Concomitant]
     Active Substance: PREGABALIN
     Indication: PAIN MANAGEMENT
     Dosage: 75 MG, 2 /DAY
     Route: 048
  4. MORPHINE SULFATE EXTENDED-RELEASE [Suspect]
     Active Substance: MORPHINE SULFATE
     Indication: PAIN IN EXTREMITY
     Dosage: 20 MG, EVERY 12 HOURS ON DAY 1 AND 2
     Route: 048
  5. INSULIN LISPRO PROTAMINE/INSULIN LISPRO [Concomitant]
     Indication: PRODUCT USED FOR UNKNOWN INDICATION
     Dosage: 15 UNITS IN MORNING, 17 UNITS AT LUNCH, 5 UNITS IN EVENING, 3/DAY
     Route: 058
  6. ZOLPIDEM [Concomitant]
     Active Substance: ZOLPIDEM\ZOLPIDEM TARTRATE
     Indication: PRODUCT USED FOR UNKNOWN INDICATION
     Dosage: 10 MG, DAILY
     Route: 048
  7. MORPHINE SULFATE EXTENDED-RELEASE [Suspect]
     Active Substance: MORPHINE SULFATE
     Dosage: 80 MG, DAILY, ON DAY 3 AND 4
     Route: 048
  8. MORPHINE SULFATE EXTENDED-RELEASE [Suspect]
     Active Substance: MORPHINE SULFATE
     Dosage: 100 MG, DAILY, ON DAY 5 AND 6
     Route: 048
  9. TELMISARTAN. [Concomitant]
     Active Substance: TELMISARTAN
     Indication: PRODUCT USED FOR UNKNOWN INDICATION
     Dosage: 25 MG, DAILY
     Route: 048
  10. LACTULOSE. [Concomitant]
     Active Substance: LACTULOSE
     Indication: CONSTIPATION
     Dosage: 10 G, 3 /DAY
     Route: 048
  11. MORPHINE SULFATE EXTENDED-RELEASE [Suspect]
     Active Substance: MORPHINE SULFATE
     Dosage: 120 MG, DAILY, ON DAY 7 AND 8
     Route: 048
  12. IBUPROFEN. [Concomitant]
     Active Substance: IBUPROFEN
     Indication: PRODUCT USED FOR UNKNOWN INDICATION
     Dosage: 600 MG, 3 /DAY, ON DAY 6
     Route: 065
  13. LOSARTAN. [Concomitant]
     Active Substance: LOSARTAN
     Indication: PRODUCT USED FOR UNKNOWN INDICATION
     Dosage: 25 MG, DAILY
     Route: 048

REACTIONS (5)
  - Deafness neurosensory [Not Recovered/Not Resolved]
  - Overdose [Unknown]
  - Tinnitus [Recovering/Resolving]
  - Urinary tract infection [Unknown]
  - Unresponsive to stimuli [Unknown]
